FAERS Safety Report 5537318-5 (Version None)
Quarter: 2007Q4

REPORT INFORMATION
  Report Type: 
  Country: None (occurrence: None)
  Receive Date: 20071207
  Receipt Date: 20071125
  Transmission Date: 20080405
  Serious: Yes (Other)
  Sender: FDA-Public Use
  Company Number: IL-ROCHE-533672

PATIENT
  Age: 55 Year
  Sex: Female

DRUGS (2)
  1. XENICAL [Suspect]
     Indication: DRUG USE FOR UNKNOWN INDICATION
     Route: 065
  2. ELTROXIN [Concomitant]
     Indication: HYPOTHYROIDISM

REACTIONS (1)
  - HYPOTHYROIDISM [None]
